FAERS Safety Report 8321935-3 (Version None)
Quarter: 2012Q2

REPORT INFORMATION
  Report Type: 
  Country: None (occurrence: None)
  Receive Date: 20120430
  Receipt Date: 20120425
  Transmission Date: 20120825
  Serious: Yes (Hospitalization, Other)
  Sender: FDA-Public Use
  Company Number: BE-ROCHE-764729

PATIENT
  Sex: Male
  Weight: 86 kg

DRUGS (9)
  1. ENTEROL [Concomitant]
     Dosage: DOSING AMOUNT -2 CO ,FREQUENCY-DAILY
     Route: 048
  2. INDERAL RETARD [Concomitant]
     Indication: PROPHYLAXIS
     Dosage: START DATE-UNKNOWN, FREQUENCY-DAILY
     Route: 048
  3. LASIX [Concomitant]
     Indication: OEDEMA
     Dosage: FREQUECNY : DAILY
     Route: 048
  4. COPEGUS [Suspect]
     Indication: HEPATITIS C
     Dosage: FREQUENCY: DAILY
     Route: 048
     Dates: start: 20100809, end: 20101105
  5. ENTEROL [Concomitant]
     Indication: ENCEPHALOPATHY
     Dosage: DOSING AMOUNT : 1 CO , FREQUECNY : DAILY
     Route: 048
  6. PEGASYS [Suspect]
     Indication: HEPATITIS C
     Route: 058
     Dates: start: 20100809, end: 20101105
  7. DEXPANTHENOL [Concomitant]
     Indication: PROPHYLAXIS AGAINST GASTROINTESTINAL ULCER
     Route: 048
  8. ALDACTONE [Concomitant]
     Indication: OEDEMA PERIPHERAL
     Dosage: FREQUENCY : DAILY
     Route: 048
     Dates: start: 20101025, end: 20101206
  9. LACTULOSE [Concomitant]
     Indication: ENCEPHALOPATHY
     Dosage: FREQUENCY :DAILY
     Route: 048

REACTIONS (7)
  - RENAL FAILURE ACUTE [None]
  - ANAEMIA [None]
  - ASCITES [None]
  - PNEUMONIA [None]
  - HEPATIC CIRRHOSIS [None]
  - TOXIC ENCEPHALOPATHY [None]
  - COAGULOPATHY [None]
